FAERS Safety Report 4794473-2 (Version None)
Quarter: 2005Q4

REPORT INFORMATION
  Report Type: 
  Country: None (occurrence: None)
  Receive Date: 20051011
  Receipt Date: 20050927
  Transmission Date: 20060501
  Serious: Yes (Death)
  Sender: FDA-Public Use
  Company Number: US-KINGPHARMUSA00001-K200501275

PATIENT
  Age: 74 Year
  Sex: Female

DRUGS (1)
  1. THROMBIN-JMI [Suspect]
     Indication: ANEURYSM
     Dosage: 2000 U, SINGLE
     Route: 042
     Dates: start: 20050803, end: 20050803

REACTIONS (9)
  - BRONCHOSPASM [None]
  - COAGULOPATHY [None]
  - CONVULSION [None]
  - GASTROINTESTINAL DISORDER [None]
  - ISCHAEMIC HEPATITIS [None]
  - LIVER DISORDER [None]
  - MULTI-ORGAN FAILURE [None]
  - PLATELET COUNT DECREASED [None]
  - PROCEDURAL COMPLICATION [None]
